FAERS Safety Report 13959178 (Version 1)
Quarter: 2017Q3

REPORT INFORMATION
  Report Type: Spontaneous
  Country: US (occurrence: US)
  Receive Date: 20170911
  Receipt Date: 20170911
  Transmission Date: 20171128
  Serious: Yes (Death, Hospitalization, Disabling, Other)
  Sender: FDA-Public Use
  Company Number: US-TEVA-804530USA

PATIENT
  Sex: Male

DRUGS (1)
  1. AMIODARONE [Suspect]
     Active Substance: AMIODARONE

REACTIONS (15)
  - Dyspnoea [Unknown]
  - Acute respiratory failure [Fatal]
  - Visual impairment [Unknown]
  - Pulmonary fibrosis [Fatal]
  - Blindness [Unknown]
  - Fatigue [Unknown]
  - Fatigue [Unknown]
  - Adverse event [Unknown]
  - Vitreous floaters [Unknown]
  - Toxicity to various agents [Unknown]
  - Wheezing [Unknown]
  - Cough [Unknown]
  - Asthenia [Unknown]
  - Weight decreased [Unknown]
  - Off label use [Unknown]

NARRATIVE: CASE EVENT DATE: 201507
